FAERS Safety Report 13300421 (Version 1)
Quarter: 2017Q1

REPORT INFORMATION
  Report Type: Spontaneous
  Country: US (occurrence: US)
  Receive Date: 20170307
  Receipt Date: 20170307
  Transmission Date: 20170428
  Serious: No
  Sender: FDA-Public Use
  Company Number: US-AUROBINDO-AUR-APL-2016-10193

PATIENT
  Age: 71 Year
  Sex: Female

DRUGS (1)
  1. METFORMIN HYDROCHLORIDE TABLETS USP 1000 MG [Suspect]
     Active Substance: METFORMIN HYDROCHLORIDE
     Indication: DIABETES MELLITUS
     Dosage: 1 DF, TWO TIMES A DAY
     Route: 065
     Dates: start: 20160627

REACTIONS (3)
  - Drug dispensing error [Unknown]
  - Nausea [Unknown]
  - Blood glucose increased [Unknown]

NARRATIVE: CASE EVENT DATE: 20160728
